FAERS Safety Report 21118040 (Version 3)
Quarter: 2022Q3

REPORT INFORMATION
  Report Type: Spontaneous
  Country: DK (occurrence: DK)
  Receive Date: 20220722
  Receipt Date: 20220815
  Transmission Date: 20221027
  Serious: Yes (Hospitalization, Other)
  Sender: FDA-Public Use
  Company Number: DK-BAYER-2022P007455

PATIENT
  Age: 22 Year
  Sex: Female
  Weight: 57 kg

DRUGS (1)
  1. KYLEENA [Suspect]
     Active Substance: LEVONORGESTREL
     Indication: Contraception
     Dosage: 17.5?G/DAY
     Route: 015
     Dates: start: 2020

REACTIONS (6)
  - Ectopic pregnancy with contraceptive device [None]
  - Haemoperitoneum [None]
  - Abdominal pain [None]
  - Procedural pain [Not Recovered/Not Resolved]
  - Drug ineffective [None]
  - Vulvovaginal inflammation [None]

NARRATIVE: CASE EVENT DATE: 20220709
